FAERS Safety Report 4330634-4 (Version None)
Quarter: 2004Q1

REPORT INFORMATION
  Report Type: 
  Country: None (occurrence: None)
  Receive Date: 20040329
  Receipt Date: 20040319
  Transmission Date: 20041129
  Serious: Yes (Death, Hospitalization)
  Sender: FDA-Public Use
  Company Number: 2003IM001014

PATIENT
  Age: 76 Year
  Sex: Male
  Weight: 106.1417 kg

DRUGS (7)
  1. ACTIMMUNE [Suspect]
     Indication: INTERSTITIAL LUNG DISEASE
     Dosage: 200 UG; TIW; SUBCUTANEOUS
     Route: 058
     Dates: start: 20020428
  2. COUMADIN [Concomitant]
  3. INDERAL [Concomitant]
  4. ZOCOR [Concomitant]
  5. VASOTEC [Concomitant]
  6. PREDNISONE [Concomitant]
  7. COLCHICINE [Concomitant]

REACTIONS (2)
  - NEUTROPENIA [None]
  - RESPIRATORY FAILURE [None]
